FAERS Safety Report 4471460-5 (Version None)
Quarter: 2004Q4

REPORT INFORMATION
  Report Type: 
  Country: None (occurrence: None)
  Receive Date: 20041007
  Receipt Date: 20041007
  Transmission Date: 20050328
  Serious: No
  Sender: FDA-Public Use
  Company Number: None

PATIENT
  Age: 45 Year
  Sex: Female
  Weight: 56.6996 kg

DRUGS (1)
  1. BAXTER PROMETHAZINE 25MG/ML 1MLVIAL [Suspect]
     Indication: NAUSEA
     Dosage: 25 MG X1 DOSE IV
     Route: 042
     Dates: start: 20040829

REACTIONS (2)
  - INJECTION SITE PAIN [None]
  - INJECTION SITE THROMBOSIS [None]
